FAERS Safety Report 8957429 (Version 2)
Quarter: 2015Q1

REPORT INFORMATION
  Report Type: Report from Study
  Country: FR (occurrence: FR)
  Receive Date: 20121210
  Receipt Date: 20150122
  Transmission Date: 20150721
  Serious: Yes (Death, Hospitalization)
  Sender: FDA-Public Use
  Company Number: FR-ROCHE-1165307

PATIENT
  Age: 78 Year
  Sex: Female

DRUGS (3)
  1. RITUXIMAB [Suspect]
     Active Substance: RITUXIMAB
     Indication: RHEUMATOID ARTHRITIS
     Dosage: DAY 1
     Route: 041
     Dates: start: 20070420
  2. METHOTREXATE [Concomitant]
     Active Substance: METHOTREXATE
     Dosage: 6 TABLETS WEEKLY
     Route: 065
  3. RITUXIMAB [Suspect]
     Active Substance: RITUXIMAB
     Dosage: DAY 15
     Route: 041
     Dates: start: 20070504

REACTIONS (7)
  - Multi-organ failure [Fatal]
  - Hypoxia [Fatal]
  - Cardio-respiratory arrest [Fatal]
  - Hyperglycaemia [Not Recovered/Not Resolved]
  - Bile duct stone [Unknown]
  - Pneumonia bacterial [Unknown]
  - Cholangitis [Unknown]

NARRATIVE: CASE EVENT DATE: 20070504
